FAERS Safety Report 20017972 (Version 3)
Quarter: 2024Q2

REPORT INFORMATION
  Report Type: Report from Study
  Country: US (occurrence: US)
  Receive Date: 20211101
  Receipt Date: 20240628
  Transmission Date: 20240716
  Serious: No
  Sender: FDA-Public Use
  Company Number: US-ACADIA PHARMACEUTICALS INC.-ACA-2021-PIM-003593

PATIENT
  Sex: Male

DRUGS (8)
  1. NUPLAZID [Suspect]
     Active Substance: PIMAVANSERIN TARTRATE
     Indication: Parkinson^s disease
     Dosage: 34 MILLIGRAM, QD
     Route: 048
  2. NUPLAZID [Suspect]
     Active Substance: PIMAVANSERIN TARTRATE
     Indication: Hallucination
  3. CARBIDOPA\LEVODOPA [Concomitant]
     Active Substance: CARBIDOPA\LEVODOPA
     Dosage: UNK
     Dates: start: 2007
  4. TRIHEXYPHENIDYL [Concomitant]
     Active Substance: TRIHEXYPHENIDYL
     Dosage: PRIOR TO 2010
  5. ROPINIROLE [Concomitant]
     Active Substance: ROPINIROLE
     Dosage: UNK
     Dates: start: 200705
  6. ATORVASTATIN [Concomitant]
     Active Substance: ATORVASTATIN
     Dosage: PRIOR TO 2012
  7. LOSARTAN [Concomitant]
     Active Substance: LOSARTAN
     Dosage: PRIOR TO 2015
  8. PAROXETINE [Concomitant]
     Active Substance: PAROXETINE
     Dosage: PRIOR TO 2013

REACTIONS (7)
  - Intentional underdose [Unknown]
  - Cough [Unknown]
  - Disturbance in attention [Not Recovered/Not Resolved]
  - Hallucination [Unknown]
  - Hallucination, visual [Unknown]
  - Drug ineffective [Unknown]
  - Hallucination, visual [Unknown]
